FAERS Safety Report 4635033-3 (Version None)
Quarter: 2005Q2

REPORT INFORMATION
  Report Type: 
  Country: None (occurrence: None)
  Receive Date: 20050411
  Receipt Date: 20050329
  Transmission Date: 20051028
  Serious: Yes (Hospitalization, Other)
  Sender: FDA-Public Use
  Company Number: 2005051613

PATIENT
  Sex: 0

DRUGS (2)
  1. GEODON [Suspect]
     Indication: ILL-DEFINED DISORDER
  2. ZYPREXA [Suspect]
     Indication: ILL-DEFINED DISORDER

REACTIONS (1)
  - PANCREATITIS [None]
